FAERS Safety Report 5556930-0 (Version None)
Quarter: 2007Q4

REPORT INFORMATION
  Report Type: 
  Country: None (occurrence: None)
  Receive Date: 20071211
  Receipt Date: 20071029
  Transmission Date: 20080405
  Serious: Yes (Other)
  Sender: FDA-Public Use
  Company Number: US021851

PATIENT
  Age: 73 Year
  Sex: Male

DRUGS (12)
  1. ACTIQ [Suspect]
     Indication: ANALGESIA
     Dosage: BUCCAL
     Route: 002
     Dates: start: 20070131
  2. FENTANYL [Concomitant]
  3. CODEINE [Concomitant]
  4. CAPTOPRIL [Concomitant]
  5. GLIMEPIRIDE [Concomitant]
  6. METFORMIN HCL [Concomitant]
  7. EPOGEN [Concomitant]
  8. LENOGRASTIM [Concomitant]
  9. METHYLPREDNISOLONE [Concomitant]
  10. OMEPRAZOLE [Concomitant]
  11. DOCETAXEL [Concomitant]
  12. CARBOPLATIN [Concomitant]

REACTIONS (6)
  - APTYALISM [None]
  - CONDITION AGGRAVATED [None]
  - DIZZINESS [None]
  - HEPATOTOXICITY [None]
  - NAUSEA [None]
  - SOMNOLENCE [None]
